FAERS Safety Report 12773878 (Version 1)
Quarter: 2016Q3

REPORT INFORMATION
  Report Type: Spontaneous
  Country: US (occurrence: US)
  Receive Date: 20160923
  Receipt Date: 20160923
  Transmission Date: 20161109
  Serious: No
  Sender: FDA-Public Use
  Company Number: US-ASTRAZENECA-2016SE97720

PATIENT
  Age: 22019 Day
  Sex: Female
  Weight: 72.6 kg

DRUGS (4)
  1. FARXIGA [Suspect]
     Active Substance: DAPAGLIFLOZIN PROPANEDIOL
     Indication: TYPE 2 DIABETES MELLITUS
     Route: 048
     Dates: start: 201603
  2. OMEPROZOLE [Suspect]
     Active Substance: OMEPRAZOLE
     Indication: GASTROOESOPHAGEAL REFLUX DISEASE
     Route: 048
     Dates: start: 2012
  3. VITAMIN D [Concomitant]
     Active Substance: CHOLECALCIFEROL
     Route: 048
  4. TRIMTERENE HCTZ [Concomitant]
     Indication: HYPERTENSION
     Dosage: DAILY
     Route: 048
     Dates: start: 2012

REACTIONS (7)
  - Low density lipoprotein increased [Unknown]
  - Arthralgia [Unknown]
  - Hypertension [Unknown]
  - Myalgia [Unknown]
  - High density lipoprotein decreased [Unknown]
  - Rheumatoid factor increased [Unknown]
  - Back pain [Unknown]

NARRATIVE: CASE EVENT DATE: 2012
